FAERS Safety Report 5088909-X (Version None)
Quarter: 2006Q3

REPORT INFORMATION
  Report Type: 
  Country: None (occurrence: None)
  Receive Date: 20060824
  Receipt Date: 20060824
  Transmission Date: 20061208
  Serious: Yes (Hospitalization)
  Sender: FDA-Public Use
  Company Number: None

PATIENT
  Age: 53 Year
  Sex: Female
  Weight: 57 kg

DRUGS (9)
  1. HURRICAINE SPRAY 20% [Suspect]
     Indication: ECHOCARDIOGRAM
     Dosage: 2 SPRAY TWICE OROPHARINGE
     Route: 049
     Dates: start: 20060719, end: 20060719
  2. KETOROLAC TROMETHAMINE [Concomitant]
  3. DEXTROSE [Concomitant]
  4. ATIVAN [Concomitant]
  5. MIDAZOLAM [Concomitant]
  6. METHYLPREDNISOLONE [Concomitant]
  7. FENTANYL [Concomitant]
  8. ONDANSETRON HCL [Concomitant]
  9. LIDOCAINE [Concomitant]

REACTIONS (4)
  - BLOOD METHAEMOGLOBIN PRESENT [None]
  - OXYGEN SATURATION DECREASED [None]
  - PALLOR [None]
  - POST PROCEDURAL COMPLICATION [None]
